FAERS Safety Report 6392189-2 (Version None)
Quarter: 2009Q4

REPORT INFORMATION
  Report Type: 
  Country: None (occurrence: None)
  Receive Date: 20091007
  Receipt Date: 20090930
  Transmission Date: 20100525
  Serious: No
  Sender: FDA-Public Use
  Company Number: US-B.I. PHARMACEUTICALS,INC./RIDGEFIELD-2009-BP-11521BP

PATIENT
  Sex: Male

DRUGS (7)
  1. SPIRIVA [Suspect]
     Indication: CHRONIC OBSTRUCTIVE PULMONARY DISEASE
     Dosage: 18 MCG
     Route: 055
     Dates: start: 20070101, end: 20090101
  2. ASMANEX TWISTHALER [Concomitant]
     Indication: CHRONIC OBSTRUCTIVE PULMONARY DISEASE
     Route: 055
     Dates: start: 20060101
  3. O2 [Concomitant]
     Indication: CHRONIC OBSTRUCTIVE PULMONARY DISEASE
     Route: 055
  4. FOLIC ACID [Concomitant]
     Indication: PROPHYLAXIS
     Route: 055
     Dates: start: 20020101
  5. VITAMIN B6 [Concomitant]
     Indication: PROPHYLAXIS
     Route: 055
     Dates: start: 20020101
  6. VITAMIN B-12 [Concomitant]
     Indication: PROPHYLAXIS
     Route: 055
     Dates: start: 20020101
  7. ASPIRIN [Concomitant]
     Indication: PROPHYLAXIS
     Route: 055

REACTIONS (10)
  - BACK PAIN [None]
  - BLOOD CHOLESTEROL INCREASED [None]
  - CHEST PAIN [None]
  - EATING DISORDER [None]
  - FAECES DISCOLOURED [None]
  - GASTRIC HAEMORRHAGE [None]
  - GASTROOESOPHAGEAL REFLUX DISEASE [None]
  - HYPERTENSION [None]
  - OESOPHAGEAL DISORDER [None]
  - PAIN [None]
